FAERS Safety Report 17817031 (Version 1)
Quarter: 2020Q2

REPORT INFORMATION
  Report Type: Other
  Country: CA (occurrence: CA)
  Receive Date: 20200522
  Receipt Date: 20200522
  Transmission Date: 20200714
  Serious: Yes (Other)
  Sender: FDA-Public Use
  Company Number: CA-COLGATE PALMOLIVE COMPANY-20200500973

PATIENT

DRUGS (33)
  1. PANTOPRAZOLE [Concomitant]
     Active Substance: PANTOPRAZOLE
  2. CHLORAPREP [Suspect]
     Active Substance: CHLORHEXIDINE GLUCONATE\ISOPROPYL ALCOHOL
     Route: 061
  3. OXYCODONE TEREPHTHALATE [Suspect]
     Active Substance: OXYCODONE TEREPHTHALATE
  4. PREDNISONE. [Concomitant]
     Active Substance: PREDNISONE
  5. COENZYME Q10 [Concomitant]
     Active Substance: UBIDECARENONE
  6. ARAVA [Suspect]
     Active Substance: LEFLUNOMIDE
  7. TYLENOL [Concomitant]
     Active Substance: ACETAMINOPHEN
  8. ZOPICLONE [Concomitant]
     Active Substance: ZOPICLONE
  9. IBUPROFEN. [Concomitant]
     Active Substance: IBUPROFEN
  10. CIMZIA [Suspect]
     Active Substance: CERTOLIZUMAB PEGOL
     Dosage: 400 MG
     Route: 058
  11. ENBREL [Suspect]
     Active Substance: ETANERCEPT
     Indication: RHEUMATOID ARTHRITIS
     Route: 058
  12. SIMPONI [Suspect]
     Active Substance: GOLIMUMAB
     Route: 058
  13. HYDROXYCHLOROQUINE [Concomitant]
     Active Substance: HYDROXYCHLOROQUINE
  14. PANTOLOC [PANTOPRAZOLE] [Concomitant]
     Active Substance: PANTOPRAZOLE SODIUM
  15. VITAMIN D [Concomitant]
     Active Substance: VITAMIN D NOS
  16. ALPHACALCIDOL [Concomitant]
     Active Substance: ALFACALCIDOL
  17. REACTINE [CETIRIZINE HYDROCHLORIDE] [Concomitant]
     Active Substance: CETIRIZINE HYDROCHLORIDE
  18. METHOTREXATE. [Suspect]
     Active Substance: METHOTREXATE
  19. SULFAMETHOXAZOLE AND TRIMETHOPRIM [Suspect]
     Active Substance: SULFAMETHOXAZOLE\TRIMETHOPRIM
  20. LEFLUNOMIDE. [Suspect]
     Active Substance: LEFLUNOMIDE
  21. VITAMIN C [Concomitant]
     Active Substance: ASCORBIC ACID
  22. FISH OIL [Concomitant]
     Active Substance: FISH OIL
  23. CIMZIA [Suspect]
     Active Substance: CERTOLIZUMAB PEGOL
     Dosage: 200 MG, EVERY 2 WEEKS
     Route: 058
  24. CIMZIA [Suspect]
     Active Substance: CERTOLIZUMAB PEGOL
     Dosage: UNK
     Route: 058
  25. ACETAMINOPHEN. [Suspect]
     Active Substance: ACETAMINOPHEN
  26. ACTEMRA [Suspect]
     Active Substance: TOCILIZUMAB
  27. ORENCIA [Suspect]
     Active Substance: ABATACEPT
  28. DESOGESTREL;ETHINYLESTRADIOL [Concomitant]
     Active Substance: DESOGESTREL\ETHINYL ESTRADIOL
  29. VENTOLIN [Concomitant]
     Active Substance: ALBUTEROL SULFATE
  30. SULFAMETHOXAZOLE AND TRIMETHOPRIM [Concomitant]
     Active Substance: SULFAMETHOXAZOLE\TRIMETHOPRIM
  31. PERIOGARD ALCOHOL FREE [Suspect]
     Active Substance: CHLORHEXIDINE GLUCONATE
     Route: 002
  32. CIMZIA [Suspect]
     Active Substance: CERTOLIZUMAB PEGOL
     Indication: RHEUMATOID ARTHRITIS
     Dosage: 400 MG, EVERY 2 WEEKS
     Route: 058
  33. PLAQUENIL [Concomitant]
     Active Substance: HYDROXYCHLOROQUINE SULFATE

REACTIONS (21)
  - Sinusitis [Unknown]
  - Urticaria [Unknown]
  - Body temperature increased [Unknown]
  - Respiratory disorder [Unknown]
  - Night sweats [Unknown]
  - Peripheral swelling [Unknown]
  - Lower respiratory tract infection [Unknown]
  - Diarrhoea [Unknown]
  - Back pain [Unknown]
  - Joint swelling [Unknown]
  - Contraindicated product administered [Unknown]
  - Asthenia [Unknown]
  - Vomiting [Unknown]
  - Abdominal pain upper [Unknown]
  - Ear pain [Unknown]
  - Pruritus [Unknown]
  - Headache [Unknown]
  - Muscle spasticity [Unknown]
  - Insomnia [Unknown]
  - Pain [Unknown]
  - Rash [Unknown]
